FAERS Safety Report 10929742 (Version 1)
Quarter: 2015Q1

REPORT INFORMATION
  Report Type: Other
  Country: GB (occurrence: GB)
  Receive Date: 20150319
  Receipt Date: 20150319
  Transmission Date: 20150721
  Serious: Yes (Other)
  Sender: FDA-Public Use
  Company Number: GB-GLENMARK GENERICS INC.-2015GMK014744

PATIENT
  Age: 34 Year
  Sex: Female
  Weight: 121.1 kg

DRUGS (6)
  1. NEFOPAM [Concomitant]
     Active Substance: NEFOPAM
     Indication: PRODUCT USED FOR UNKNOWN INDICATION
     Dosage: UNK
  2. GABAPENTIN. [Suspect]
     Active Substance: GABAPENTIN
     Dosage: 100 MG, UNK
     Route: 048
  3. MELOXICAM. [Concomitant]
     Active Substance: MELOXICAM
     Indication: PRODUCT USED FOR UNKNOWN INDICATION
     Dosage: UNK
  4. GABAPENTIN. [Suspect]
     Active Substance: GABAPENTIN
     Indication: FIBROMYALGIA
     Dosage: 300 MG, BID
     Route: 048
  5. EFEXOR XL [Concomitant]
     Active Substance: VENLAFAXINE HYDROCHLORIDE
     Indication: DEPRESSION
     Dosage: 225 MG, OD
  6. MIRTAZAPINE. [Concomitant]
     Active Substance: MIRTAZAPINE
     Indication: DEPRESSION
     Dosage: 15 MG, OD

REACTIONS (8)
  - Psychotic disorder [Recovering/Resolving]
  - Anxiety [Recovering/Resolving]
  - Intentional self-injury [Recovering/Resolving]
  - Abnormal behaviour [Unknown]
  - Suicidal ideation [Recovering/Resolving]
  - Insomnia [Not Recovered/Not Resolved]
  - Depression [Recovering/Resolving]
  - Product use issue [Recovered/Resolved]
